FAERS Safety Report 20062200 (Version 2)
Quarter: 2021Q4

REPORT INFORMATION
  Report Type: Spontaneous
  Country: GB (occurrence: GB)
  Receive Date: 20211112
  Receipt Date: 20211120
  Transmission Date: 20220303
  Serious: Yes (Death, Other)
  Sender: FDA-Public Use
  Company Number: GB-009507513-2111GBR002964

PATIENT
  Sex: Male

DRUGS (1)
  1. ISENTRESS [Suspect]
     Active Substance: RALTEGRAVIR POTASSIUM
     Dosage: 400 MILLIGRAM, STRENGTH: 400 MG
     Route: 048

REACTIONS (1)
  - Death [Fatal]
